FAERS Safety Report 18359673 (Version 1)
Quarter: 2020Q4

REPORT INFORMATION
  Report Type: Spontaneous
  Country: US (occurrence: US)
  Receive Date: 20201008
  Receipt Date: 20201008
  Transmission Date: 20210114
  Serious: No
  Sender: FDA-Public Use
  Company Number: US-ELI_LILLY_AND_COMPANY-US202009008675

PATIENT
  Sex: Male

DRUGS (14)
  1. HUMALOG [Suspect]
     Active Substance: INSULIN LISPRO
     Dosage: 10 U, LUNCH
     Route: 065
     Dates: start: 2008
  2. METFORMIN [Concomitant]
     Active Substance: METFORMIN HYDROCHLORIDE
     Indication: TYPE 1 DIABETES MELLITUS
  3. HUMALOG [Suspect]
     Active Substance: INSULIN LISPRO
     Indication: TYPE 1 DIABETES MELLITUS
     Dosage: 6-8 U, EACH MORNING
     Route: 065
     Dates: start: 2008
  4. TRESIBA [Concomitant]
     Active Substance: INSULIN DEGLUDEC
     Indication: TYPE 1 DIABETES MELLITUS
  5. HUMALOG [Suspect]
     Active Substance: INSULIN LISPRO
     Dosage: 10 U, LUNCH
     Route: 065
     Dates: start: 2008
  6. HUMALOG [Suspect]
     Active Substance: INSULIN LISPRO
     Dosage: 10-12 U, EACH EVENING
     Route: 065
  7. HUMALOG [Suspect]
     Active Substance: INSULIN LISPRO
     Dosage: 6-8 U, EACH MORNING
     Route: 065
  8. HUMALOG [Suspect]
     Active Substance: INSULIN LISPRO
     Dosage: 10-12 U, EACH EVENING
     Route: 065
     Dates: start: 2008
  9. HUMALOG [Suspect]
     Active Substance: INSULIN LISPRO
     Dosage: 10 U, LUNCH
     Route: 065
  10. HUMALOG [Suspect]
     Active Substance: INSULIN LISPRO
     Dosage: 10 U, LUNCH
     Route: 065
  11. HUMALOG [Suspect]
     Active Substance: INSULIN LISPRO
     Indication: TYPE 1 DIABETES MELLITUS
     Dosage: 6-8 U, EACH MORNING
     Route: 065
     Dates: start: 2008
  12. HUMALOG [Suspect]
     Active Substance: INSULIN LISPRO
     Dosage: 10-12 U, EACH EVENING
     Route: 065
     Dates: start: 2008
  13. HUMALOG [Suspect]
     Active Substance: INSULIN LISPRO
     Dosage: 10-12 U, EACH EVENING
     Route: 065
  14. HUMALOG [Suspect]
     Active Substance: INSULIN LISPRO
     Dosage: 6-8 U, EACH MORNING
     Route: 065

REACTIONS (2)
  - Blood glucose increased [Unknown]
  - Incorrect dose administered [Unknown]
